FAERS Safety Report 17705141 (Version 9)
Quarter: 2022Q3

REPORT INFORMATION
  Report Type: Spontaneous
  Country: US (occurrence: US)
  Receive Date: 20200424
  Receipt Date: 20220718
  Transmission Date: 20221027
  Serious: Yes (Hospitalization, Other)
  Sender: FDA-Public Use
  Company Number: US-PFIZER INC-2020159922

PATIENT
  Age: 66 Year
  Sex: Female

DRUGS (4)
  1. XELJANZ [Suspect]
     Active Substance: TOFACITINIB CITRATE
     Indication: Rheumatoid arthritis
     Dosage: 5 MG, 1X/DAY (ONE TABLET ONCE A DAY)
     Route: 048
  2. XELJANZ [Suspect]
     Active Substance: TOFACITINIB CITRATE
     Dosage: 5 MG, 1X/DAY 1 WEEK (WHICH MAY HAVE BEEN LONGER THAN 1 WEEK)
     Route: 048
     Dates: start: 2020, end: 2020
  3. XELJANZ [Suspect]
     Active Substance: TOFACITINIB CITRATE
     Dosage: 5 MG, 2X/DAY
     Route: 048
     Dates: start: 20200416
  4. XELJANZ [Suspect]
     Active Substance: TOFACITINIB CITRATE
     Dosage: 5 MG, 2X/DAY
     Route: 048
     Dates: start: 202110

REACTIONS (22)
  - Hypertension [Unknown]
  - Headache [Unknown]
  - Visual impairment [Unknown]
  - Deep vein thrombosis [Unknown]
  - Gout [Unknown]
  - Fall [Unknown]
  - Rectal haemorrhage [Recovered/Resolved]
  - Arthropathy [Unknown]
  - Rhinorrhoea [Unknown]
  - Abdominal pain [Unknown]
  - Constipation [Recovering/Resolving]
  - Cough [Unknown]
  - Swelling [Recovering/Resolving]
  - Pain [Recovering/Resolving]
  - Joint range of motion decreased [Unknown]
  - Osteoarthritis [Unknown]
  - Meniscus injury [Unknown]
  - Oedema peripheral [Unknown]
  - Decreased appetite [Unknown]
  - Paraesthesia [Unknown]
  - Nerve compression [Unknown]
  - Drug ineffective [Not Recovered/Not Resolved]

NARRATIVE: CASE EVENT DATE: 20210601
